FAERS Safety Report 6653503-3 (Version None)
Quarter: 2010Q1

REPORT INFORMATION
  Report Type: 
  Country: None (occurrence: None)
  Receive Date: 20100326
  Receipt Date: 20100322
  Transmission Date: 20100710
  Serious: Yes (Hospitalization)
  Sender: FDA-Public Use
  Company Number: GR-TEVA-228369ISR

PATIENT
  Age: 22 Year
  Sex: Male

DRUGS (9)
  1. DOXORUBICIN HCL [Suspect]
  2. METHOTREXATE [Suspect]
  3. VINCRISTINE [Suspect]
  4. METHYLPREDNISOLONE [Suspect]
     Route: 048
  5. GRANULOCYTE COLONY STIMULATING FACTOR [Suspect]
  6. FOLINIC ACID [Suspect]
  7. CYCLOPHOSPHAMIDE [Suspect]
  8. BLEOMYCIN [Suspect]
  9. PREDNISONE TAB [Suspect]

REACTIONS (3)
  - BONE MARROW NECROSIS [None]
  - CONUS MEDULLARIS SYNDROME [None]
  - FAT EMBOLISM [None]
